FAERS Safety Report 4567054-3 (Version None)
Quarter: 2005Q1

REPORT INFORMATION
  Report Type: 
  Country: None (occurrence: None)
  Receive Date: 20050126
  Receipt Date: 20050113
  Transmission Date: 20050727
  Serious: Yes (Hospitalization)
  Sender: FDA-Public Use
  Company Number: 211722

PATIENT
  Age: 76 Year
  Sex: Male

DRUGS (6)
  1. RITUXAN [Suspect]
     Indication: NON-HODGKIN'S LYMPHOMA
     Dosage: 723.75 MG, Q3W, INTRAVENOUS
     Route: 042
     Dates: start: 20041008
  2. PEGFILGRASTIM (PEGFILGRASTIM) [Suspect]
     Indication: NON-HODGKIN'S LYMPHOMA
     Dosage: 6 MG, Q3W, SUBCUTANEOUS
     Route: 058
     Dates: start: 20041008, end: 20041210
  3. CYCLOPHOSPHAMIDE [Suspect]
     Indication: NON-HODGKIN'S LYMPHOMA
     Dosage: 1447.5 MG, Q2W, INTRAVENOUS
     Route: 042
     Dates: start: 20041008
  4. DOXORUBICIN (DOXORUBICIN, DOXORUBICIN, HYDROCHLORIDE) [Suspect]
     Indication: NON-HODGKIN'S LYMPHOMA
     Dosage: 96.5 MG, Q3W, INTRAVENOUS
     Route: 042
     Dates: start: 20041008
  5. VINCRISTINE [Suspect]
     Indication: NON-HODGKIN'S LYMPHOMA
     Dosage: 2 MG, Q3W, INTRAVENOUS
     Route: 042
     Dates: start: 20041008
  6. PREDNISONE [Suspect]
     Indication: NON-HODGKIN'S LYMPHOMA
     Dosage: 100 MG
     Dates: start: 20041008

REACTIONS (7)
  - ACUTE MYOCARDIAL INFARCTION [None]
  - CARDIAC FAILURE CONGESTIVE [None]
  - CORONARY ARTERY OCCLUSION [None]
  - CYTOKINE STORM [None]
  - PULMONARY HYPERTENSION [None]
  - VENTRICULAR HYPOKINESIA [None]
  - WHITE BLOOD CELL COUNT INCREASED [None]
